FAERS Safety Report 12585139 (Version 3)
Quarter: 2016Q4

REPORT INFORMATION
  Report Type: Spontaneous
  Country: IT (occurrence: IT)
  Receive Date: 20160723
  Receipt Date: 20161130
  Transmission Date: 20170207
  Serious: Yes (Other)
  Sender: FDA-Public Use
  Company Number: IT-ACCORD-042527

PATIENT
  Age: 54 Year
  Sex: Female
  Weight: 85 kg

DRUGS (2)
  1. LEVETIRACETAM ACCORD [Suspect]
     Active Substance: LEVETIRACETAM
     Indication: EPILEPSY
     Dosage: STRENGTH: 1000 MG
     Route: 048
     Dates: start: 20160101
  2. TOPIRAMATE EG [Suspect]
     Active Substance: TOPIRAMATE
     Indication: EPILEPSY
     Dosage: STRENGTH: 100 MG
     Route: 048
     Dates: start: 20160601, end: 20160629

REACTIONS (2)
  - Product substitution issue [Unknown]
  - Epilepsy [Recovered/Resolved]

NARRATIVE: CASE EVENT DATE: 20160629
